FAERS Safety Report 5277778-0 (Version None)
Quarter: 2007Q1

REPORT INFORMATION
  Report Type: 
  Country: None (occurrence: None)
  Receive Date: 20070321
  Receipt Date: 20070309
  Transmission Date: 20070707
  Serious: Yes (Hospitalization, Other)
  Sender: FDA-Public Use
  Company Number: 2007US-06289

PATIENT
  Age: 17 Year
  Sex: Male

DRUGS (1)
  1. ISOTRETINOIN [Suspect]
     Dosage: 30 MG, ORAL
     Route: 048

REACTIONS (2)
  - EPISTAXIS [None]
  - FACE INJURY [None]
